FAERS Safety Report 12261363 (Version 1)
Quarter: 2016Q2

REPORT INFORMATION
  Report Type: Spontaneous
  Country: US (occurrence: None)
  Receive Date: 20160412
  Receipt Date: 20160412
  Transmission Date: 20160815
  Serious: Yes (Hospitalization)
  Sender: FDA-Public Use
  Company Number: None

PATIENT
  Age: 63 Year
  Sex: Female
  Weight: 68.9 kg

DRUGS (7)
  1. NORCO [Concomitant]
     Active Substance: ACETAMINOPHEN\HYDROCODONE BITARTRATE
  2. MULTIPLE VITAMINS-MINERALS (MULTIVITAMIN PO) [Concomitant]
  3. WARFARIN [Suspect]
     Active Substance: WARFARIN
     Indication: DEEP VEIN THROMBOSIS
     Route: 048
     Dates: start: 20160128, end: 20160203
  4. TYLENOL [Concomitant]
     Active Substance: ACETAMINOPHEN
  5. COUMADIN [Concomitant]
     Active Substance: WARFARIN SODIUM
  6. CHOLECALCIFEROL (VITAMIN D) [Concomitant]
  7. FERROUS SULFATE (IRON) [Concomitant]

REACTIONS (2)
  - International normalised ratio increased [None]
  - Haematochezia [None]

NARRATIVE: CASE EVENT DATE: 20160203
